FAERS Safety Report 7202877-3 (Version None)
Quarter: 2010Q4

REPORT INFORMATION
  Report Type: 
  Country: None (occurrence: None)
  Receive Date: 20101229
  Receipt Date: 20101220
  Transmission Date: 20110411
  Serious: Yes (Other)
  Sender: FDA-Public Use
  Company Number: SE-PFIZER INC-2010175354

PATIENT
  Age: 37 Year
  Sex: Male

DRUGS (6)
  1. LYRICA [Suspect]
     Dosage: UNK
     Route: 048
     Dates: start: 20100401
  2. THERALEN [Concomitant]
     Dosage: UNK
  3. DIAZEPAM [Concomitant]
     Dosage: UNK
  4. OXASCAND [Concomitant]
     Dosage: UNK
  5. XANOR [Concomitant]
     Dosage: 2 MG, UNK
  6. FLUNITRAZEPAM [Concomitant]
     Dosage: UNK

REACTIONS (1)
  - DEPENDENCE [None]
